FAERS Safety Report 24137327 (Version 1)
Quarter: 2024Q3

REPORT INFORMATION
  Report Type: Spontaneous
  Country: US (occurrence: US)
  Receive Date: 20240725
  Receipt Date: 20240725
  Transmission Date: 20241016
  Serious: Yes (Life-Threatening, Other)
  Sender: AMERICAN REGENT
  Company Number: US-AMERICAN REGENT INC-2024002848

PATIENT
  Age: 43 Year
  Sex: Male
  Weight: 102 kg

DRUGS (3)
  1. VENOFER [Suspect]
     Active Substance: IRON SUCROSE
     Indication: Product used for unknown indication
     Dosage: UNK
     Route: 042
     Dates: start: 20240604, end: 20240604
  2. MIRCERA [Suspect]
     Active Substance: METHOXY POLYETHYLENE GLYCOL-EPOETIN BETA
     Indication: Nephrogenic anaemia
     Dosage: FIRST DOSE (1 IN 2 WK)
     Dates: start: 20240606, end: 20240606
  3. MIRCERA [Suspect]
     Active Substance: METHOXY POLYETHYLENE GLYCOL-EPOETIN BETA
     Dosage: SECOND INCREASED DOSE (225 MICROGRAM, 1 IN 2 WK)
     Dates: start: 20240620, end: 20240620

REACTIONS (1)
  - Drug hypersensitivity [Recovered/Resolved]

NARRATIVE: CASE EVENT DATE: 20240620
